FAERS Safety Report 7425022-8 (Version None)
Quarter: 2011Q2

REPORT INFORMATION
  Report Type: 
  Country: None (occurrence: None)
  Receive Date: 20110419
  Receipt Date: 20110405
  Transmission Date: 20111010
  Serious: Yes (Hospitalization)
  Sender: FDA-Public Use
  Company Number: US-BAYER-2011-029660

PATIENT
  Age: 56 Year
  Sex: Male

DRUGS (2)
  1. AMPICILLIN AND SULBACTAM [Concomitant]
     Indication: INFECTION PROPHYLAXIS
     Dosage: UNK
  2. CIPRO [Suspect]
     Indication: INFECTION PROPHYLAXIS
     Dosage: 400 MG, UNK
     Route: 042

REACTIONS (3)
  - AEROMONA INFECTION [None]
  - PATHOGEN RESISTANCE [None]
  - SOFT TISSUE NECROSIS [None]
